FAERS Safety Report 7988348-5 (Version None)
Quarter: 2011Q4

REPORT INFORMATION
  Report Type: 
  Country: None (occurrence: None)
  Receive Date: 20111216
  Receipt Date: 20111207
  Transmission Date: 20120403
  Serious: Yes (Hospitalization, Other)
  Sender: FDA-Public Use
  Company Number: DE-ABBOTT-11P-062-0699391-00

PATIENT
  Sex: Female
  Weight: 76 kg

DRUGS (19)
  1. HUMIRA [Suspect]
     Dates: start: 20070530
  2. PREDNISOLONE [Concomitant]
     Indication: PRODUCT USED FOR UNKNOWN INDICATION
     Dosage: 5MG DAILY
  3. LEVOCETIRIZINE DIHYDROCHLORIDE [Concomitant]
     Indication: PRODUCT USED FOR UNKNOWN INDICATION
     Dates: start: 20080701
  4. PREDNISONE [Concomitant]
     Indication: CROHN'S DISEASE
     Dosage: 5 MG DAILY
     Dates: start: 19950701, end: 20110404
  5. BISOPROLOL FUMARATE [Concomitant]
     Indication: PRODUCT USED FOR UNKNOWN INDICATION
     Dosage: 2.5MG DAILY
  6. ZINK [Concomitant]
     Indication: PRODUCT USED FOR UNKNOWN INDICATION
     Dosage: DAILY
  7. ZINKAMIN [Concomitant]
     Indication: PRODUCT USED FOR UNKNOWN INDICATION
  8. FOLIC ACID [Concomitant]
     Indication: PRODUCT USED FOR UNKNOWN INDICATION
  9. ESOMEPRAZOLE MAGNESIUM [Concomitant]
     Indication: PRODUCT USED FOR UNKNOWN INDICATION
  10. CALCIUM CARBONATE [Concomitant]
     Indication: PRODUCT USED FOR UNKNOWN INDICATION
     Dosage: 500MG CALCIUM + 400 IU VIT D BID
     Route: 048
  11. HUMIRA [Suspect]
     Route: 058
     Dates: start: 20060801
  12. NOVALGIN [Concomitant]
     Indication: PRODUCT USED FOR UNKNOWN INDICATION
  13. HYDROCORTISONE [Concomitant]
     Indication: PRODUCT USED FOR UNKNOWN INDICATION
     Dosage: 5 MG DAILY
     Dates: start: 20110405
  14. HUMIRA [Suspect]
     Indication: CROHN'S DISEASE
     Route: 058
     Dates: start: 20060515, end: 20060701
  15. ZINK [Concomitant]
     Dosage: OD
  16. PREDNISONE [Concomitant]
     Dosage: 40 MG DAILY
     Dates: start: 20111030, end: 20111120
  17. HYDROCORTISONE [Concomitant]
     Dosage: 5 MG DAILY
     Dates: start: 20111121
  18. STEROID [Concomitant]
     Indication: CROHN'S DISEASE
     Route: 048
  19. TEMGESIC [Concomitant]
     Indication: PRODUCT USED FOR UNKNOWN INDICATION
     Dosage: 5MG DAILY

REACTIONS (10)
  - DECREASED APPETITE [None]
  - NAUSEA [None]
  - PYLORIC STENOSIS [None]
  - GASTRIC ULCER [None]
  - CROHN'S DISEASE [None]
  - GASTRIC DILATATION [None]
  - OBSTRUCTION GASTRIC [None]
  - ABDOMINAL PAIN [None]
  - ABDOMINAL PAIN UPPER [None]
  - GASTRITIS [None]
